FAERS Safety Report 16465799 (Version 1)
Quarter: 2019Q2

REPORT INFORMATION
  Report Type: Report from Study
  Country: IT (occurrence: IT)
  Receive Date: 20190621
  Receipt Date: 20190621
  Transmission Date: 20190711
  Serious: Yes (Other)
  Sender: FDA-Public Use
  Company Number: IT-MYLANLABS-2019M1057990

PATIENT
  Age: 49 Year
  Sex: Male

DRUGS (1)
  1. KLACID 500 MG COMPRESSE RIVESTITE [Suspect]
     Active Substance: CLARITHROMYCIN
     Indication: INFECTION
     Dosage: 1000 MILLIGRAM, QD
     Route: 048
     Dates: start: 20181227, end: 20181228

REACTIONS (3)
  - Paraesthesia [Recovering/Resolving]
  - Lip oedema [Recovering/Resolving]
  - Face oedema [Recovering/Resolving]

NARRATIVE: CASE EVENT DATE: 20181228
